FAERS Safety Report 6075919-9 (Version None)
Quarter: 2009Q1

REPORT INFORMATION
  Report Type: 
  Country: None (occurrence: None)
  Receive Date: 20090209
  Receipt Date: 20090127
  Transmission Date: 20090719
  Serious: Yes (Hospitalization)
  Sender: FDA-Public Use
  Company Number: 1000003818

PATIENT
  Age: 75 Year
  Sex: Female

DRUGS (11)
  1. MEMANTINE HCL [Suspect]
     Indication: DEMENTIA ALZHEIMER'S TYPE
     Dosage: ORAL
     Route: 048
     Dates: start: 20081014, end: 20081211
  2. NOROXIN [Suspect]
  3. FURADANTIN [Suspect]
     Dosage: ORAL
     Route: 048
  4. DETENSIEL [Concomitant]
  5. NITROGLYCERIN [Concomitant]
  6. DEPAKENE [Concomitant]
  7. KARDEGIC [Concomitant]
  8. LEVOTHYROX [Concomitant]
  9. IMOVANE [Concomitant]
  10. ZOLOFT [Concomitant]
  11. EXELON (POULTICE OR PATCH) [Concomitant]

REACTIONS (4)
  - CONSTIPATION [None]
  - DIARRHOEA [None]
  - FAECALOMA [None]
  - PANCREATITIS ACUTE [None]
